FAERS Safety Report 9287143 (Version 4)
Quarter: 2014Q4

REPORT INFORMATION
  Report Type: Spontaneous
  Country: US (occurrence: US)
  Receive Date: 20130513
  Receipt Date: 20141117
  Transmission Date: 20150529
  Serious: Yes (Hospitalization, Disabling, Other)
  Sender: FDA-Public Use
  Company Number: US-009507513-1305USA005531

PATIENT
  Sex: Female
  Weight: 65.76 kg

DRUGS (3)
  1. ALENDRONATE SODIUM. [Suspect]
     Active Substance: ALENDRONATE SODIUM
     Indication: OSTEOPENIA
     Dosage: 70 MG, QW
     Route: 048
     Dates: start: 20080212, end: 201101
  2. EFFEXOR [Concomitant]
     Active Substance: VENLAFAXINE HYDROCHLORIDE
     Dosage: UNK
     Route: 048
     Dates: start: 2004
  3. FOSAMAX [Suspect]
     Active Substance: ALENDRONATE SODIUM
     Indication: OSTEOPENIA
     Dosage: 70 MG, QW
     Route: 048
     Dates: start: 20030228, end: 20080211

REACTIONS (16)
  - Low turnover osteopathy [Not Recovered/Not Resolved]
  - Hypothyroidism [Unknown]
  - Hypertension [Unknown]
  - Open reduction of fracture [Unknown]
  - Femur fracture [Recovering/Resolving]
  - Hot flush [Unknown]
  - Dyslipidaemia [Unknown]
  - Intramedullary rod insertion [Unknown]
  - Endodontic procedure [Unknown]
  - Foot fracture [Recovering/Resolving]
  - Anxiety [Unknown]
  - Sinus congestion [Unknown]
  - Anaemia [Recovered/Resolved]
  - Sinus headache [Unknown]
  - Gingivectomy [Unknown]
  - Sinus headache [Unknown]

NARRATIVE: CASE EVENT DATE: 2003
